FAERS Safety Report 18753301 (Version 1)
Quarter: 2021Q1

REPORT INFORMATION
  Report Type: Spontaneous
  Country: US (occurrence: US)
  Receive Date: 20210118
  Receipt Date: 20210118
  Transmission Date: 20210419
  Serious: No
  Sender: FDA-Public Use
  Company Number: US-TEVA-2021-US-1868757

PATIENT
  Sex: Male

DRUGS (1)
  1. METRONIDAZOLE. [Suspect]
     Active Substance: METRONIDAZOLE
     Indication: DIVERTICULITIS
     Route: 048

REACTIONS (6)
  - Dysgeusia [Unknown]
  - Dyspepsia [Unknown]
  - Abdominal distension [Unknown]
  - Decreased appetite [Unknown]
  - Product use complaint [Unknown]
  - Product solubility abnormal [Unknown]
